FAERS Safety Report 8669348 (Version 3)
Quarter: 2012Q4

REPORT INFORMATION
  Report Type: Report from Study
  Country: US (occurrence: US)
  Receive Date: 20120717
  Receipt Date: 20120919
  Transmission Date: 20130627
  Serious: Yes (Other)
  Sender: FDA-Public Use
  Company Number: US-ROCHE-1088724

PATIENT
  Age: 58 Year
  Sex: Male
  Weight: 95.07 kg

DRUGS (7)
  1. ZELBORAF [Suspect]
     Indication: METASTATIC MALIGNANT MELANOMA
     Dosage: Last dose prior to SAE: 26 Jun 2012
     Route: 048
     Dates: start: 20120523
  2. UNSPECIFIED INGREDIENT [Suspect]
     Indication: METASTATIC MALIGNANT MELANOMA
     Dosage: Last dose prior to SAE: 25 Jun 2012
     Route: 048
     Dates: start: 20120523
  3. IMODIUM [Concomitant]
     Dosage: 2 mg/125 mg
     Route: 065
     Dates: start: 20120524
  4. PRILOSEC [Concomitant]
     Route: 065
     Dates: start: 20120604
  5. LOMOTIL [Concomitant]
     Route: 065
     Dates: start: 20120626
  6. GABAPENTIN [Concomitant]
     Route: 065
     Dates: start: 20120614
  7. TYLENOL [Concomitant]
     Route: 065
     Dates: start: 20120619

REACTIONS (1)
  - Hyperthyroidism [Recovered/Resolved]
